FAERS Safety Report 6751394-3 (Version None)
Quarter: 2010Q2

REPORT INFORMATION
  Report Type: 
  Country: None (occurrence: None)
  Receive Date: 20100528
  Receipt Date: 20100519
  Transmission Date: 20101027
  Serious: Yes (Other)
  Sender: FDA-Public Use
  Company Number: FR-1181993

PATIENT
  Age: 78 Year
  Sex: Male

DRUGS (1)
  1. AZOPT   (BRINZOLAMIDE) 1 % OPHTHALMIC SUSPENSION EYE DROPS, [Suspect]
     Dosage: OPHTHALMIC
     Route: 047
     Dates: start: 20090901

REACTIONS (4)
  - OEDEMA PERIPHERAL [None]
  - OROPHARYNGEAL PAIN [None]
  - PAIN IN EXTREMITY [None]
  - PERIPHERAL PARALYSIS [None]
